FAERS Safety Report 10027658 (Version 4)
Quarter: 2015Q2

REPORT INFORMATION
  Report Type: Spontaneous
  Country: US (occurrence: US)
  Receive Date: 20140321
  Receipt Date: 20150616
  Transmission Date: 20150821
  Serious: Yes (Hospitalization, Other)
  Sender: FDA-Public Use
  Company Number: US-SANOFI-AVENTIS-2012SA003172

PATIENT
  Age: 70 Year
  Sex: Female

DRUGS (13)
  1. PLAVIX [Suspect]
     Active Substance: CLOPIDOGREL BISULFATE
     Indication: TRANSIENT ISCHAEMIC ATTACK
     Route: 048
     Dates: start: 2003
  2. ASPIRIN. [Concomitant]
     Active Substance: ASPIRIN
     Dates: end: 20090523
  3. MAALOX ANTACID [Concomitant]
     Active Substance: ALUMINUM HYDROXIDE\DIMETHICONE\MAGNESIUM HYDROXIDE
     Route: 048
  4. OMEPRAZOLE. [Concomitant]
     Active Substance: OMEPRAZOLE
     Route: 048
     Dates: end: 20090523
  5. BENADRYL [Concomitant]
     Active Substance: DIPHENHYDRAMINE HYDROCHLORIDE
     Route: 048
     Dates: end: 20090523
  6. SIMVASTATIN. [Concomitant]
     Active Substance: SIMVASTATIN
     Route: 048
     Dates: end: 20090523
  7. ALPHAGAN P [Concomitant]
     Active Substance: BRIMONIDINE TARTRATE
     Dosage: 1 DROP EACH EYE AM/BEDTIME
     Route: 047
     Dates: end: 20090523
  8. FERROUS SULFATE [Concomitant]
     Active Substance: FERROUS SULFATE\FERROUS SULFATE, DRIED
     Route: 048
     Dates: end: 20090523
  9. ALPRAZOLAM. [Concomitant]
     Active Substance: ALPRAZOLAM
     Dates: end: 20090523
  10. DETROL [Concomitant]
     Active Substance: TOLTERODINE TARTRATE
     Route: 048
     Dates: end: 20090523
  11. EFFEXOR [Concomitant]
     Active Substance: VENLAFAXINE HYDROCHLORIDE
     Route: 048
     Dates: end: 20090523
  12. MELATONIN [Concomitant]
     Active Substance: MELATONIN
  13. TYLENOL [Concomitant]
     Active Substance: ACETAMINOPHEN
     Route: 048
     Dates: end: 20090523

REACTIONS (4)
  - Gastrointestinal haemorrhage [Unknown]
  - Multiple injuries [Unknown]
  - Epistaxis [Unknown]
  - Haemorrhage [Unknown]

NARRATIVE: CASE EVENT DATE: 20090524
